FAERS Safety Report 4332996-0 (Version None)
Quarter: 2004Q1

REPORT INFORMATION
  Report Type: 
  Country: None (occurrence: None)
  Receive Date: 20040330
  Receipt Date: 20031201
  Transmission Date: 20041129
  Serious: Yes (Death)
  Sender: FDA-Public Use
  Company Number: USA-2003-0012053

PATIENT
  Age: 44 Year
  Sex: Male

DRUGS (2)
  1. OXYCODONE HCL [Suspect]
  2. AMITRIPTYLINE HCL [Suspect]

REACTIONS (14)
  - ARTERIOSCLEROSIS [None]
  - BRAIN OEDEMA [None]
  - BRONCHOPNEUMONIA [None]
  - CARDIOMEGALY [None]
  - COMA [None]
  - CONTUSION [None]
  - DISORIENTATION [None]
  - DRUG TOXICITY [None]
  - DYSPNOEA [None]
  - EXCORIATION [None]
  - PALLOR [None]
  - PULMONARY CONGESTION [None]
  - PULMONARY OEDEMA [None]
  - REFUSAL OF TREATMENT BY PATIENT [None]
